FAERS Safety Report 10046690 (Version 3)
Quarter: 2014Q2

REPORT INFORMATION
  Report Type: Report from Study
  Country: DE (occurrence: DE)
  Receive Date: 20140331
  Receipt Date: 20140512
  Transmission Date: 20141212
  Serious: Yes (Hospitalization, Other)
  Sender: FDA-Public Use
  Company Number: DE-AMGEN-DEUCT2014021799

PATIENT
  Age: 73 Year
  Sex: Male
  Weight: 75 kg

DRUGS (11)
  1. ETANERCEPT [Suspect]
     Indication: PRODUCT USED FOR UNKNOWN INDICATION
     Dosage: 50 MG, WEEKLY
     Route: 065
     Dates: start: 20130925
  2. MTX                                /00113802/ [Concomitant]
     Dosage: 22.5 MG, WEEKLY
     Route: 048
     Dates: start: 201107
  3. FOLIC ACID [Concomitant]
     Dosage: 5 MG, WEEKLY
     Route: 048
     Dates: start: 201107
  4. PREDNISOLONE [Concomitant]
     Dosage: 7.5 MG, 1X/DAY
     Route: 048
  5. OMEP                               /00661201/ [Concomitant]
     Dosage: 20 MG, DAILY
     Route: 048
     Dates: start: 201110, end: 201403
  6. RANIDURA T [Concomitant]
     Dosage: 300 MG, DAILY
     Route: 048
     Dates: start: 201103
  7. VIANI [Concomitant]
     Dosage: 50 UG/250 UG
     Route: 048
     Dates: start: 201309
  8. SPIRIVA [Concomitant]
     Dosage: 18 UG, 1X/DAY
     Route: 048
     Dates: start: 201309
  9. ASS [Concomitant]
     Dosage: 100 MG, DAILY
     Dates: start: 201209
  10. CALCIUM D3 SANDOZ [Concomitant]
     Dosage: 1 DF, DAILY
     Dates: start: 201107
  11. CLOPIDOGREL [Concomitant]
     Dosage: 75 MG, DAILY
     Dates: start: 201209, end: 201402

REACTIONS (2)
  - Pneumonia aspiration [Recovered/Resolved]
  - Medical device complication [Not Recovered/Not Resolved]
